FAERS Safety Report 8504758-1 (Version None)
Quarter: 2012Q3

REPORT INFORMATION
  Report Type: 
  Country: None (occurrence: None)
  Receive Date: 20120712
  Receipt Date: 20120705
  Transmission Date: 20120928
  Serious: Yes (Life-Threatening, Hospitalization, Other)
  Sender: FDA-Public Use
  Company Number: SE-BRISTOL-MYERS SQUIBB COMPANY-16536443

PATIENT
  Age: 79 Year
  Sex: Male

DRUGS (8)
  1. IRBESARTAN [Suspect]
     Indication: HYPERTENSION
     Route: 048
     Dates: end: 20111218
  2. ESOMEPRAZOLE [Concomitant]
     Dosage: GASTRO-RESISTANT TAB
  3. LANTUS [Concomitant]
     Indication: DIABETES MELLITUS
  4. ASPIRIN [Concomitant]
     Dosage: TAB
  5. METFORMIN HCL [Suspect]
     Indication: DIABETES MELLITUS
     Route: 048
     Dates: end: 20111218
  6. WARFARIN SODIUM [Concomitant]
     Indication: ATRIAL FIBRILLATION
     Dosage: TAB
  7. FUROSEMIDE [Concomitant]
     Dosage: TAB
  8. GLYTRIN [Concomitant]
     Dosage: SPRAY 0.4MG PER DOSE
     Route: 060

REACTIONS (4)
  - LACTIC ACIDOSIS [None]
  - DIVERTICULITIS MECKEL'S [None]
  - RENAL FAILURE ACUTE [None]
  - CARDIAC ARREST [None]
